FAERS Safety Report 18972977 (Version 2)
Quarter: 2021Q1

REPORT INFORMATION
  Report Type: Spontaneous
  Country: US (occurrence: US)
  Receive Date: 20210305
  Receipt Date: 20210317
  Transmission Date: 20210420
  Serious: No
  Sender: FDA-Public Use
  Company Number: US-UNITED THERAPEUTICS-UNT-2021-003805

PATIENT
  Age: 42 Year
  Sex: Female
  Weight: 63.95 kg

DRUGS (2)
  1. REMODULIN [Suspect]
     Active Substance: TREPROSTINIL
     Indication: PULMONARY ARTERIAL HYPERTENSION
     Dosage: UNK UNK, CONTINUING
     Route: 058
     Dates: start: 20201027
  2. REMODULIN [Suspect]
     Active Substance: TREPROSTINIL
     Dosage: 0.0515 ?G/KG, CONTINUING (AT 0.040 ML/HR)
     Route: 058

REACTIONS (2)
  - Weight decreased [Recovered/Resolved]
  - Diarrhoea [Not Recovered/Not Resolved]

NARRATIVE: CASE EVENT DATE: 202012
